FAERS Safety Report 16152662 (Version 1)
Quarter: 2019Q2

REPORT INFORMATION
  Report Type: Spontaneous
  Country: US (occurrence: US)
  Receive Date: 20190403
  Receipt Date: 20190403
  Transmission Date: 20190711
  Serious: No
  Sender: FDA-Public Use
  Company Number: US-SA-2019SA092508

PATIENT
  Sex: Female

DRUGS (2)
  1. KEVZARA [Suspect]
     Active Substance: SARILUMAB
  2. CELEBREX [Concomitant]
     Active Substance: CELECOXIB

REACTIONS (2)
  - Abdominal pain [Unknown]
  - Lip swelling [Unknown]
